FAERS Safety Report 10554209 (Version 1)
Quarter: 2014Q4

REPORT INFORMATION
  Report Type: Spontaneous
  Country: US (occurrence: None)
  Receive Date: 20141028
  Receipt Date: 20141028
  Transmission Date: 20150529
  Serious: Yes (Other)
  Sender: FDA-Public Use
  Company Number: 201410128

PATIENT
  Age: 65 Year
  Sex: Male

DRUGS (1)
  1. TESTIM [Suspect]
     Active Substance: TESTOSTERONE
     Route: 062
     Dates: start: 20131203

REACTIONS (4)
  - Anxiety [None]
  - Economic problem [None]
  - Myocardial infarction [None]
  - Pain [None]

NARRATIVE: CASE EVENT DATE: 20140314
